FAERS Safety Report 6910339-3 (Version None)
Quarter: 2010Q3

REPORT INFORMATION
  Report Type: 
  Country: None (occurrence: None)
  Receive Date: 20100806
  Receipt Date: 20100727
  Transmission Date: 20110219
  Serious: Yes (Death, Other)
  Sender: FDA-Public Use
  Company Number: US-PFIZER INC-2005145560

PATIENT
  Sex: Male

DRUGS (6)
  1. GABAPENTIN [Suspect]
     Route: 065
  2. VIAGRA [Suspect]
     Indication: ERECTILE DYSFUNCTION
     Route: 048
  3. INDERAL [Suspect]
     Indication: HYPERTENSION
     Route: 065
  4. IMIPRAMINE [Suspect]
     Indication: DEPRESSION
     Route: 065
  5. ETHANOL [Suspect]
     Indication: ILL-DEFINED DISORDER
     Route: 048
  6. BUSPAR [Concomitant]
     Route: 065

REACTIONS (14)
  - ACUTE PULMONARY OEDEMA [None]
  - ACUTE RESPIRATORY DISTRESS SYNDROME [None]
  - ATELECTASIS [None]
  - CARDIO-RESPIRATORY ARREST [None]
  - CEREBRAL DISORDER [None]
  - COMPLETED SUICIDE [None]
  - CONVULSION [None]
  - DEPRESSION [None]
  - DRUG INEFFECTIVE [None]
  - ENCEPHALOPATHY [None]
  - MULTIPLE DRUG OVERDOSE INTENTIONAL [None]
  - PNEUMONIA ASPIRATION [None]
  - RESPIRATORY FAILURE [None]
  - SINUS TACHYCARDIA [None]
